FAERS Safety Report 9747252 (Version 1)
Quarter: 2013Q4

REPORT INFORMATION
  Report Type: Spontaneous
  Country: ES (occurrence: ES)
  Receive Date: 20131212
  Receipt Date: 20131212
  Transmission Date: 20140711
  Serious: Yes (Other)
  Sender: FDA-Public Use
  Company Number: ES-ROCHE-1312711

PATIENT
  Age: 35 Year
  Sex: Female
  Weight: 105 kg

DRUGS (2)
  1. HERCEPTIN [Suspect]
     Indication: BREAST CANCER
     Route: 065
     Dates: start: 20130708
  2. ABRAXANE [Interacting]
     Indication: BREAST CANCER
     Route: 042
     Dates: start: 20130709, end: 20130903

REACTIONS (4)
  - Axonal neuropathy [Not Recovered/Not Resolved]
  - Peripheral motor neuropathy [Not Recovered/Not Resolved]
  - Peripheral sensory neuropathy [Not Recovered/Not Resolved]
  - Drug interaction [Unknown]
